FAERS Safety Report 5709737-5 (Version None)
Quarter: 2008Q2

REPORT INFORMATION
  Report Type: 
  Country: None (occurrence: None)
  Receive Date: 20080418
  Receipt Date: 20070611
  Transmission Date: 20081010
  Serious: Yes (Hospitalization)
  Sender: FDA-Public Use
  Company Number: US-ASTRAZENECA-2007UW14021

PATIENT
  Age: 77 Year
  Sex: Male
  Weight: 82.6 kg

DRUGS (3)
  1. CASODEX [Suspect]
     Indication: PROSTATE CANCER
     Route: 048
     Dates: start: 20070301
  2. FLOMAX [Concomitant]
  3. INJECTION [Concomitant]
     Indication: PROSTATE CANCER
     Dosage: Q 6 MONTHS

REACTIONS (4)
  - BONE PAIN [None]
  - EYE PAIN [None]
  - HEADACHE [None]
  - JOINT SWELLING [None]
